FAERS Safety Report 13452104 (Version 1)
Quarter: 2017Q2

REPORT INFORMATION
  Report Type: Spontaneous
  Country: CH (occurrence: CH)
  Receive Date: 20170418
  Receipt Date: 20170418
  Transmission Date: 20170830
  Serious: Yes (Life-Threatening, Hospitalization)
  Sender: FDA-Public Use
  Company Number: CH-ARALEZ PHARMACEUTICALS R+D INC.-ARA-TP-CH-2017-407

PATIENT
  Age: 83 Year
  Sex: Female

DRUGS (7)
  1. TORASEMIDE [Interacting]
     Active Substance: TORSEMIDE
     Indication: ESSENTIAL HYPERTENSION
     Dates: end: 20170326
  2. METOPROLOL SUCCINATE. [Suspect]
     Active Substance: METOPROLOL SUCCINATE
     Indication: CARDIAC FAILURE
     Dates: end: 20170326
  3. ALDACTONE [Interacting]
     Active Substance: SPIRONOLACTONE
     Indication: ESSENTIAL HYPERTENSION
     Dates: start: 201701, end: 20170326
  4. LISINOPRIL. [Interacting]
     Active Substance: LISINOPRIL
     Indication: ESSENTIAL HYPERTENSION
     Dates: end: 20170326
  5. DIGOXIN. [Interacting]
     Active Substance: DIGOXIN
     Indication: PRODUCT USED FOR UNKNOWN INDICATION
     Dates: end: 20170326
  6. AMLODIPINE [Interacting]
     Active Substance: AMLODIPINE BESYLATE
     Indication: ESSENTIAL HYPERTENSION
     Dates: end: 20170326
  7. CARDURA CR [Interacting]
     Active Substance: DOXAZOSIN MESYLATE
     Indication: ESSENTIAL HYPERTENSION
     Dates: start: 201701, end: 20170326

REACTIONS (11)
  - Hyponatraemia [None]
  - Bundle branch block right [Unknown]
  - Delirium [Not Recovered/Not Resolved]
  - Lactic acidosis [Recovered/Resolved]
  - Drug interaction [Unknown]
  - Overdose [None]
  - Cardiac failure [Unknown]
  - Hyperkalaemia [None]
  - Atrioventricular block second degree [Unknown]
  - Bradycardia [None]
  - Renal failure [None]

NARRATIVE: CASE EVENT DATE: 20170325
